FAERS Safety Report 10918882 (Version 4)
Quarter: 2015Q3

REPORT INFORMATION
  Report Type: Spontaneous
  Country: RS (occurrence: RS)
  Receive Date: 20150316
  Receipt Date: 20150707
  Transmission Date: 20151125
  Serious: Yes (Death, Other)
  Sender: FDA-Public Use
  Company Number: RS-TEVA-509198USA

PATIENT
  Age: 45 Year
  Sex: Female
  Weight: 60 kg

DRUGS (5)
  1. BENDAMUSTINE HYDROCHLORIDE [Suspect]
     Active Substance: BENDAMUSTINE HYDROCHLORIDE
     Indication: CHRONIC LYMPHOCYTIC LEUKAEMIA
     Route: 042
     Dates: start: 20140310, end: 20140311
  2. ACYCLOVIR                          /00587301/ [Concomitant]
     Active Substance: ACYCLOVIR
     Indication: HERPES ZOSTER
     Route: 065
  3. BACTRIM [Concomitant]
     Active Substance: SULFAMETHOXAZOLE\TRIMETHOPRIM
     Indication: PNEUMOCYSTIS JIROVECII PNEUMONIA
     Route: 065
  4. KANAZOL [Concomitant]
     Indication: PRODUCT USED FOR UNKNOWN INDICATION
     Route: 065
  5. ALOPURINOL [Concomitant]
     Active Substance: ALLOPURINOL
     Indication: PRODUCT USED FOR UNKNOWN INDICATION
     Dosage: 300 MG, ONCE DAILY WHEN CHEMOTHERAPY IS ADMINISTERED
     Route: 065

REACTIONS (4)
  - Thrombocytopenia [Not Recovered/Not Resolved]
  - Chronic lymphocytic leukaemia [Fatal]
  - Pneumonia fungal [Fatal]
  - Central nervous system haemorrhage [Fatal]

NARRATIVE: CASE EVENT DATE: 20140723
